FAERS Safety Report 19383647 (Version 2)
Quarter: 2021Q2

REPORT INFORMATION
  Report Type: Report from Study
  Country: US (occurrence: US)
  Receive Date: 20210607
  Receipt Date: 20210630
  Transmission Date: 20210717
  Serious: Yes (Other)
  Sender: FDA-Public Use
  Company Number: US-BAYER-2021-123731

PATIENT
  Age: 51 Year
  Sex: Male

DRUGS (3)
  1. STIVARGA [Suspect]
     Active Substance: REGORAFENIB
     Indication: COLORECTAL CANCER
     Dosage: DAILY DOSE 120 MG FOR 21 DAYS ON THEN 7 DAYS OFF
     Route: 048
     Dates: start: 2021, end: 202105
  2. STIVARGA [Suspect]
     Active Substance: REGORAFENIB
     Indication: COLORECTAL CANCER
     Dosage: DAILY DOSE 80 MG FOR 21 DAYS ON THEN 7 DAYS OFF
     Route: 048
     Dates: start: 202105, end: 202105
  3. STIVARGA [Suspect]
     Active Substance: REGORAFENIB
     Indication: COLORECTAL CANCER
     Dosage: DAILY DOSE 80 MG FOR 21 DAYS ON THEN 7 DAYS OFF
     Route: 048
     Dates: start: 20210411, end: 2021

REACTIONS (10)
  - Colorectal cancer [None]
  - Gait inability [Recovering/Resolving]
  - Loss of personal independence in daily activities [Recovering/Resolving]
  - Off label use [Recovered/Resolved]
  - Exercise tolerance decreased [Not Recovered/Not Resolved]
  - Blister [Recovering/Resolving]
  - Fatigue [Not Recovered/Not Resolved]
  - Paraesthesia [Recovered/Resolved]
  - Pain of skin [Recovering/Resolving]
  - Drug ineffective [Not Recovered/Not Resolved]

NARRATIVE: CASE EVENT DATE: 202104
